FAERS Safety Report 8522764-8 (Version None)
Quarter: 2012Q3

REPORT INFORMATION
  Report Type: 
  Country: None (occurrence: None)
  Receive Date: 20120719
  Receipt Date: 20120712
  Transmission Date: 20120928
  Serious: Yes (Other)
  Sender: FDA-Public Use
  Company Number: JP-B.I. PHARMACEUTICALS,INC./RIDGEFIELD-2012-EU-02921GD

PATIENT
  Sex: Male

DRUGS (2)
  1. PRAMIPEXOLE DIHYDROCHLORIDE [Suspect]
     Indication: PARKINSON'S DISEASE
     Dosage: 0.5 MG
  2. PRAMIPEXOLE DIHYDROCHLORIDE [Suspect]
     Dosage: 1 MG
     Dates: end: 20110401

REACTIONS (6)
  - AGGRESSION [None]
  - NIGHTMARE [None]
  - INJURY [None]
  - BACK PAIN [None]
  - RAPID EYE MOVEMENTS SLEEP ABNORMAL [None]
  - POSTURE ABNORMAL [None]
